FAERS Safety Report 7723672-2 (Version None)
Quarter: 2011Q3

REPORT INFORMATION
  Report Type: 
  Country: None (occurrence: None)
  Receive Date: 20110901
  Receipt Date: 20110825
  Transmission Date: 20111222
  Serious: Yes (Hospitalization, Other)
  Sender: FDA-Public Use
  Company Number: US-BAYER-US-2007-002864

PATIENT
  Age: 59 Year
  Sex: Female

DRUGS (7)
  1. BLOOD PRESSURE MEDICATION (NOS) [Concomitant]
  2. BETASERON [Suspect]
     Indication: MULTIPLE SCLEROSIS
     Dosage: 8 MIU, EVERY 2D
     Route: 058
     Dates: start: 20050821, end: 20070216
  3. BETASERON [Suspect]
     Dosage: 8 MIU QOD
     Dates: start: 20070522
  4. BETASERON [Suspect]
     Dosage: UNK
     Dates: end: 20110728
  5. BETASERON [Suspect]
     Dosage: UNK
     Dates: start: 20070312, end: 20070407
  6. ALPRAZOLAM [Concomitant]
  7. LEXAPRO [Concomitant]

REACTIONS (10)
  - CONVULSION [None]
  - DELUSIONAL DISORDER, UNSPECIFIED TYPE [None]
  - OEDEMA PERIPHERAL [None]
  - ANXIETY [None]
  - FEELING ABNORMAL [None]
  - DEPRESSION [None]
  - WEIGHT DECREASED [None]
  - ELECTROENCEPHALOGRAM ABNORMAL [None]
  - HALLUCINATION, AUDITORY [None]
  - PARANOIA [None]
